FAERS Safety Report 7878326-9 (Version None)
Quarter: 2011Q4

REPORT INFORMATION
  Report Type: 
  Country: None (occurrence: None)
  Receive Date: 20111101
  Receipt Date: 20111020
  Transmission Date: 20120403
  Serious: Yes (Other)
  Sender: FDA-Public Use
  Company Number: US-JNJFOC-20111010044

PATIENT
  Age: 60 Year
  Sex: Male
  Weight: 102.06 kg

DRUGS (3)
  1. VISINE EYE DROPS [Suspect]
     Indication: ASTHENOPIA
     Dosage: ONE DROP IN EACH EYE ONCE
     Route: 047
     Dates: start: 20110901, end: 20110901
  2. VISINE EYE DROPS [Suspect]
     Indication: EYE IRRITATION
     Dosage: ONE DROP IN EACH EYE ONCE
     Route: 047
     Dates: start: 20110901, end: 20110901
  3. LISINOPRIL [Concomitant]
     Indication: HYPERTENSION
     Dosage: A WHILE
     Route: 065

REACTIONS (4)
  - OFF LABEL USE [None]
  - APPLICATION SITE PAIN [None]
  - APPLICATION SITE ERYTHEMA [None]
  - PRODUCT CONTAMINATION [None]
